FAERS Safety Report 7044172-1 (Version None)
Quarter: 2010Q4

REPORT INFORMATION
  Report Type: 
  Country: None (occurrence: None)
  Receive Date: 20101013
  Receipt Date: 20101004
  Transmission Date: 20110411
  Serious: Yes (Life-Threatening, Disabling)
  Sender: FDA-Public Use
  Company Number: GB-PFIZER INC-2010125880

PATIENT
  Age: 51 Year
  Sex: Female
  Weight: 55 kg

DRUGS (2)
  1. GABAPENTIN [Suspect]
     Dosage: UNK
     Route: 048
     Dates: start: 20080821, end: 20100801
  2. EVOREL [Concomitant]
     Indication: MENOPAUSE

REACTIONS (7)
  - AGITATION [None]
  - ALOPECIA [None]
  - ANGER [None]
  - INFECTION [None]
  - MOOD SWINGS [None]
  - SUICIDAL IDEATION [None]
  - TEARFULNESS [None]
